APPROVED DRUG PRODUCT: ATOVAQUONE AND PROGUANIL HYDROCHLORIDE
Active Ingredient: ATOVAQUONE; PROGUANIL HYDROCHLORIDE
Strength: 250MG;100MG
Dosage Form/Route: TABLET;ORAL
Application: A202362 | Product #002 | TE Code: AB
Applicant: MYLAN PHARMACEUTICALS INC
Approved: May 27, 2014 | RLD: No | RS: No | Type: RX